FAERS Safety Report 20216082 (Version 3)
Quarter: 2022Q1

REPORT INFORMATION
  Report Type: Report from Study
  Country: US (occurrence: US)
  Receive Date: 20211222
  Receipt Date: 20220104
  Transmission Date: 20220423
  Serious: Yes (Death, Other)
  Sender: FDA-Public Use
  Company Number: US-NOVARTISPH-NVSC2021US289157

PATIENT
  Age: 71 Year
  Sex: Female

DRUGS (2)
  1. TREPROSTINIL [Suspect]
     Active Substance: TREPROSTINIL
     Indication: Pulmonary hypertension
     Dosage: 70 NG/KG/MIN, CONT
     Route: 042
     Dates: start: 20191127
  2. TREPROSTINIL [Suspect]
     Active Substance: TREPROSTINIL
     Dosage: 70 NG/KG/MIN, CONT
     Route: 042
     Dates: start: 20211217

REACTIONS (4)
  - Death [Fatal]
  - Cardiac failure [Unknown]
  - Renal failure [Unknown]
  - Depressed level of consciousness [Unknown]

NARRATIVE: CASE EVENT DATE: 20211226
